FAERS Safety Report 6027246-3 (Version None)
Quarter: 2008Q4

REPORT INFORMATION
  Report Type: 
  Country: None (occurrence: None)
  Receive Date: 20081231
  Receipt Date: 20081231
  Transmission Date: 20090506
  Serious: Yes (Other)
  Sender: FDA-Public Use
  Company Number: None

PATIENT
  Age: 35 Year
  Sex: Female
  Weight: 53.5244 kg

DRUGS (3)
  1. TIZANIDINE HCL [Suspect]
     Indication: BONE PAIN
     Dosage: 2 TIMES A DAY AS NEEDED PO
     Route: 048
     Dates: start: 20081201, end: 20081218
  2. TIZANIDINE HCL [Suspect]
     Indication: INTERVERTEBRAL DISC PROTRUSION
     Dosage: 2 TIMES A DAY AS NEEDED PO
     Route: 048
     Dates: start: 20081201, end: 20081218
  3. TIZANIDINE HCL [Suspect]
     Indication: NECK PAIN
     Dosage: 2 TIMES A DAY AS NEEDED PO
     Route: 048
     Dates: start: 20081201, end: 20081218

REACTIONS (4)
  - EMOTIONAL DISTRESS [None]
  - FEAR [None]
  - FRUSTRATION [None]
  - HALLUCINATION, VISUAL [None]
